FAERS Safety Report 23234923 (Version 1)
Quarter: 2023Q4

REPORT INFORMATION
  Report Type: Spontaneous
  Country: US (occurrence: None)
  Receive Date: 20231127
  Receipt Date: 20231127
  Transmission Date: 20240110
  Serious: Yes (Other)
  Sender: FDA-Public Use
  Company Number: None

PATIENT
  Age: 65 Year
  Sex: Male
  Weight: 85.5 kg

DRUGS (1)
  1. RUGBY LUBRICATING DROPS [Suspect]
     Active Substance: POLYVINYL ALCOHOL
     Dates: start: 20231020, end: 20231120

REACTIONS (2)
  - Eye infection [None]
  - Instillation site infection [None]
